FAERS Safety Report 10370803 (Version 2)
Quarter: 2014Q3

REPORT INFORMATION
  Report Type: Spontaneous
  Country: IL (occurrence: IL)
  Receive Date: 20140808
  Receipt Date: 20140813
  Transmission Date: 20150326
  Serious: Yes (Death, Hospitalization)
  Sender: FDA-Public Use
  Company Number: IL-SHIRE-IL201404643

PATIENT
  Age: 66 Year
  Sex: Female

DRUGS (1)
  1. VPRIV [Suspect]
     Active Substance: VELAGLUCERASE ALFA
     Indication: GAUCHER^S DISEASE
     Dosage: UNK, UNKNOWN
     Route: 041

REACTIONS (8)
  - Septic shock [Fatal]
  - Lung disorder [Unknown]
  - Nosocomial infection [Unknown]
  - Atrial fibrillation [Unknown]
  - Femur fracture [Unknown]
  - Fall [Unknown]
  - Pulmonary embolism [Unknown]
  - Cardiac disorder [Unknown]

NARRATIVE: CASE EVENT DATE: 2014
